FAERS Safety Report 22332688 (Version 1)
Quarter: 2023Q2

REPORT INFORMATION
  Report Type: Report from Study
  Country: IN (occurrence: IN)
  Receive Date: 20230517
  Receipt Date: 20230517
  Transmission Date: 20230722
  Serious: Yes (Other)
  Sender: FDA-Public Use
  Company Number: IN-002147023-NVSC2022IN026045

PATIENT
  Age: 74 Year
  Sex: Female

DRUGS (4)
  1. ALPELISIB [Suspect]
     Active Substance: ALPELISIB
     Indication: Breast cancer metastatic
     Dosage: 300 MG, QD
     Route: 048
     Dates: start: 20211112
  2. ALPELISIB [Suspect]
     Active Substance: ALPELISIB
     Dosage: 300 MG OD ALTERNATE DAYS
     Route: 048
     Dates: start: 20211112, end: 202201
  3. ALPELISIB [Suspect]
     Active Substance: ALPELISIB
     Dosage: 300 MG, QD
     Route: 048
     Dates: start: 20211214
  4. ALPELISIB [Suspect]
     Active Substance: ALPELISIB
     Dosage: 300 MG ONCE DAILY ON ALTERNATE DAYS
     Route: 048
     Dates: start: 202201

REACTIONS (7)
  - Pneumonia [Unknown]
  - COVID-19 [Recovered/Resolved]
  - Hyperglycaemia [Unknown]
  - Decreased appetite [Unknown]
  - Abdominal discomfort [Recovered/Resolved]
  - Urinary tract infection [Recovered/Resolved]
  - Product prescribing error [Unknown]

NARRATIVE: CASE EVENT DATE: 20220101
